FAERS Safety Report 7609928-2 (Version None)
Quarter: 2011Q3

REPORT INFORMATION
  Report Type: 
  Country: None (occurrence: None)
  Receive Date: 20110714
  Receipt Date: 20110708
  Transmission Date: 20111222
  Serious: Yes (Other)
  Sender: FDA-Public Use
  Company Number: CN-ABBOTT-11P-035-0837652-00

PATIENT
  Age: 32 Year
  Sex: Female

DRUGS (1)
  1. DEPAKENE [Suspect]
     Indication: EPILEPSY
     Route: 048
     Dates: start: 20090101

REACTIONS (3)
  - WEIGHT INCREASED [None]
  - EPILEPSY [None]
  - PRODUCT QUALITY ISSUE [None]
